FAERS Safety Report 19445367 (Version 3)
Quarter: 2021Q3

REPORT INFORMATION
  Report Type: Spontaneous
  Country: US (occurrence: US)
  Receive Date: 20210622
  Receipt Date: 20210826
  Transmission Date: 20211014
  Serious: Yes (Hospitalization, Other)
  Sender: FDA-Public Use
  Company Number: US-SA-2021SA200437

PATIENT
  Age: 41 Year
  Sex: Male
  Weight: 88.44 kg

DRUGS (2)
  1. SERTRALINE [Interacting]
     Active Substance: SERTRALINE HYDROCHLORIDE
  2. AUBAGIO [Suspect]
     Active Substance: TERIFLUNOMIDE
     Indication: MULTIPLE SCLEROSIS
     Dosage: 14 MG, QD
     Route: 048
     Dates: start: 20201223, end: 20210601

REACTIONS (4)
  - Substance-induced psychotic disorder [Recovering/Resolving]
  - Drug interaction [Recovering/Resolving]
  - Sepsis [Recovering/Resolving]
  - Urinary tract infection enterococcal [Recovering/Resolving]

NARRATIVE: CASE EVENT DATE: 202105
